FAERS Safety Report 6264233-4 (Version None)
Quarter: 2009Q3

REPORT INFORMATION
  Report Type: 
  Country: None (occurrence: None)
  Receive Date: 20090708
  Receipt Date: 20090708
  Transmission Date: 20100115
  Serious: Yes (Other)
  Sender: FDA-Public Use
  Company Number: None

PATIENT
  Sex: Female
  Weight: 70.3075 kg

DRUGS (2)
  1. ZICAM COLD REMEDY NASAL GEL ZICAM, LLC [Suspect]
     Indication: NASOPHARYNGITIS
     Dosage: ONE SPRAY EVERY 4 HRS. NASAL (5 DAYS EACH TIME)
     Route: 045
     Dates: start: 19991125, end: 20090125
  2. ZICAM COLD REMEDY GEL SWABS ZICAM, LLC [Suspect]
     Indication: NASOPHARYNGITIS
     Dosage: ONE SWAB EVERY 4 HRS. NASAL
     Route: 045
     Dates: start: 20081125, end: 20081228

REACTIONS (2)
  - DYSGEUSIA [None]
  - PAROSMIA [None]
